FAERS Safety Report 5580564-5 (Version None)
Quarter: 2007Q4

REPORT INFORMATION
  Report Type: 
  Country: None (occurrence: None)
  Receive Date: 20071130
  Receipt Date: 20070717
  Transmission Date: 20080405
  Serious: No
  Sender: FDA-Public Use
  Company Number: US200707004790

PATIENT
  Age: 62 Year
  Weight: 73.9 kg

DRUGS (8)
  1. BYETTA [Suspect]
     Indication: TYPE 2 DIABETES MELLITUS
     Dosage: SUBCUTANEOUS
     Route: 058
     Dates: start: 20061101
  2. GLUCOTROL [Concomitant]
  3. GLUCOPHAGE [Concomitant]
  4. EFFEXOR [Concomitant]
  5. ZETIA [Concomitant]
  6. LIPITOR [Concomitant]
  7. LISINOPRIL [Concomitant]
  8. PREMARIN (ESTROGENS CONJUGATED, MEDROGESTONE) [Concomitant]

REACTIONS (2)
  - NEUROPATHY PERIPHERAL [None]
  - WEIGHT DECREASED [None]
